FAERS Safety Report 7747478-3 (Version None)
Quarter: 2011Q3

REPORT INFORMATION
  Report Type: 
  Country: None (occurrence: None)
  Receive Date: 20110913
  Receipt Date: 20110912
  Transmission Date: 20111222
  Serious: Yes (Other)
  Sender: FDA-Public Use
  Company Number: JP-PFIZER INC-2011183968

PATIENT
  Age: 67 Year
  Sex: Male
  Weight: 64 kg

DRUGS (11)
  1. REBAMIPIDE [Concomitant]
     Indication: GASTRITIS
     Dosage: 100 MG, 3X/DAY
     Route: 048
     Dates: start: 20110607
  2. TRANEXAMIC ACID [Concomitant]
     Indication: HAEMOPTYSIS
     Dosage: 500 MG, 2X/DAY
     Route: 048
     Dates: start: 20090918
  3. RIBAVIRIN [Concomitant]
     Indication: HEPATITIS C
     Dosage: 400 MG, 2X/DAY
     Route: 048
     Dates: start: 20110609
  4. VFEND [Suspect]
     Indication: FUNGAL INFECTION
     Dosage: 300 MG, 2X/DAY
     Route: 048
     Dates: start: 20110726, end: 20110726
  5. MICAFUNGIN SODIUM [Concomitant]
     Indication: FUNGAL INFECTION
     Dosage: 100 MG, 1X/DAY
     Route: 041
     Dates: start: 20110721, end: 20110725
  6. XYZAL [Concomitant]
     Indication: DERMATITIS
     Dosage: 5 MG, 1X/DAY
     Route: 048
     Dates: start: 20110607
  7. MICAFUNGIN SODIUM [Concomitant]
     Dosage: 150 MG, WEEKLY
     Route: 041
     Dates: start: 20110802
  8. PEGASYS [Concomitant]
     Indication: HEPATITIS C
     Dosage: 180 MG, WEEKLY
     Route: 058
     Dates: start: 20110607
  9. VFEND [Suspect]
     Dosage: 200 MG, 2X/DAY
     Route: 048
     Dates: start: 20110727, end: 20110809
  10. LOXOPROFEN [Concomitant]
     Indication: PYREXIA
     Dosage: 60 MG, 3X/DAY
     Route: 048
     Dates: start: 20110607
  11. TANATRIL ^ALGOL^ [Concomitant]
     Indication: HYPERTENSION
     Dosage: 10 MG, 1X/DAY
     Route: 048
     Dates: start: 20010918

REACTIONS (3)
  - MALAISE [None]
  - DECREASED APPETITE [None]
  - BLOOD CREATINE PHOSPHOKINASE INCREASED [None]
